FAERS Safety Report 6031164-4 (Version None)
Quarter: 2009Q1

REPORT INFORMATION
  Report Type: 
  Country: None (occurrence: None)
  Receive Date: 20090108
  Receipt Date: 20090106
  Transmission Date: 20090719
  Serious: No
  Sender: FDA-Public Use
  Company Number: AU-ASTRAZENECA-2009AP00282

PATIENT
  Sex: Female

DRUGS (3)
  1. SEROQUEL [Suspect]
     Route: 048
  2. SEROQUEL [Suspect]
     Dosage: SWITCHED TO SEROQUEL XR
     Route: 048
  3. CYMBALTA [Concomitant]

REACTIONS (2)
  - NEUTROPENIA [None]
  - ORAL CANDIDIASIS [None]
